FAERS Safety Report 5922121-4 (Version None)
Quarter: 2008Q3

REPORT INFORMATION
  Report Type: 
  Country: None (occurrence: None)
  Receive Date: 20080909
  Receipt Date: 20080619
  Transmission Date: 20090109
  Serious: Yes (Hospitalization)
  Sender: FDA-Public Use
  Company Number: 163-20785-08061314

PATIENT
  Age: 67 Year
  Sex: Male
  Weight: 94.8 kg

DRUGS (20)
  1. THALOMID [Suspect]
     Indication: MULTIPLE MYELOMA
     Dosage: 25 MG, 1 IN 1 D, ORAL ; 200 MG, ORAL
     Route: 048
     Dates: end: 20080403
  2. THALOMID [Suspect]
     Indication: MULTIPLE MYELOMA
     Dosage: 25 MG, 1 IN 1 D, ORAL ; 200 MG, ORAL
     Route: 048
     Dates: start: 20060503
  3. VELCADE [Suspect]
     Indication: MULTIPLE MYELOMA
     Dosage: 2 MG/M2, DAYS 1, 4, 8, + 11 ; 1 MG/M2, DAYS 1, 4, 8, + 11
     Dates: end: 20080320
  4. VELCADE [Suspect]
     Indication: MULTIPLE MYELOMA
     Dosage: 2 MG/M2, DAYS 1, 4, 8, + 11 ; 1 MG/M2, DAYS 1, 4, 8, + 11
     Dates: start: 20060503
  5. DEXAMETHASONE TAB [Suspect]
     Indication: MULTIPLE MYELOMA
     Dosage: 12 MG, DAYS 1, 4, 8, + 11, ORAL ; 40 MG, ORAL
     Route: 048
     Dates: end: 20080320
  6. DEXAMETHASONE TAB [Suspect]
     Indication: MULTIPLE MYELOMA
     Dosage: 12 MG, DAYS 1, 4, 8, + 11, ORAL ; 40 MG, ORAL
     Route: 048
     Dates: start: 20080503
  7. VYTORIN (INEGY) (TABLETS) [Concomitant]
  8. ACYCLOVIR (ACICLOVIR) (400 MILLIGRAM, TABLETS) [Concomitant]
  9. ASPIRINE (ACETYLSALICYLIC ACID) (81 MILLIGRAM, TABLETS) [Concomitant]
  10. GLIPIZIDE (GLIPIZIDE) (5 MILLIGRAM, TABLETS) [Concomitant]
  11. LYRICA (PREGABALIN) (100 MILLIGRAM, TABLETS) [Concomitant]
  12. METFORMIN (METFORMIN) (1000 MILLIGRAM, TABLETS) [Concomitant]
  13. MULTIVITAMINS (MULTIVITAMINS) (TABLETS) [Concomitant]
  14. TOPROL XL (METOPROLOL SUCCINATE) (50 MILLIGRAM, TABLETS) [Concomitant]
  15. LASIX [Concomitant]
  16. LEXAPRO [Concomitant]
  17. POTASSIUM (POTASSIUM) [Concomitant]
  18. ZANTAC 150 [Concomitant]
  19. SYNTHROID [Concomitant]
  20. LEVAQUIN [Concomitant]

REACTIONS (2)
  - DEHYDRATION [None]
  - RENAL FAILURE ACUTE [None]
